FAERS Safety Report 6882636-1 (Version None)
Quarter: 2010Q3

REPORT INFORMATION
  Report Type: 
  Country: None (occurrence: None)
  Receive Date: 20100729
  Receipt Date: 20100713
  Transmission Date: 20110219
  Serious: No
  Sender: FDA-Public Use
  Company Number: US-MYLANLABS-2010S1010571

PATIENT
  Age: 55 Year
  Sex: Male
  Weight: 81.65 kg

DRUGS (4)
  1. TAMSULOSIN HCL [Suspect]
     Indication: BENIGN PROSTATIC HYPERPLASIA
     Route: 048
     Dates: start: 20100611, end: 20100614
  2. FEXOFENADINE [Concomitant]
  3. ZOLPIDEM [Concomitant]
  4. DOXAZOSIN [Concomitant]

REACTIONS (3)
  - DIZZINESS [None]
  - DIZZINESS POSTURAL [None]
  - HOSTILITY [None]
